FAERS Safety Report 7298861-4 (Version None)
Quarter: 2011Q1

REPORT INFORMATION
  Report Type: 
  Country: None (occurrence: None)
  Receive Date: 20110207
  Receipt Date: 20110121
  Transmission Date: 20110831
  Serious: Yes (Hospitalization)
  Sender: FDA-Public Use
  Company Number: AUR-APL-2011-00333

PATIENT
  Age: 77 Year
  Sex: Female
  Weight: 67.57 kg

DRUGS (10)
  1. METOPROLOL [Suspect]
     Indication: TACHYCARDIA
     Dosage: 100MG-BID-ORAL
     Route: 048
     Dates: start: 20070329, end: 20090619
  2. VITAMIN D [Concomitant]
  3. METOPROLOL [Suspect]
     Indication: TACHYCARDIA
     Dosage: 25MG-BID-ORAL
     Route: 048
     Dates: start: 20090624
  4. ARICEPT [Suspect]
     Indication: DEMENTIA ALZHEIMER'S TYPE
     Dosage: 10MG-QD-ORAL
     Route: 048
     Dates: start: 20081219
  5. IBANDRONATE SODIUM [Concomitant]
  6. PLAIN [Concomitant]
  7. PF04494700 (UNBLINDED) [Suspect]
     Indication: DEMENTIA ALZHEIMER'S TYPE
     Dosage: 20MG-QD-ORAL
     Route: 048
     Dates: start: 20090423, end: 20090904
  8. NAMENDA [Concomitant]
  9. MULTI-VITAMINS [Concomitant]
  10. METOPROLOL [Suspect]
     Indication: TACHYCARDIA
     Dosage: 50MG-BID-ORAL
     Route: 048
     Dates: start: 20090620, end: 20090623

REACTIONS (2)
  - DRUG INTERACTION [None]
  - VERTIGO [None]
